FAERS Safety Report 24677278 (Version 1)
Quarter: 2024Q4

REPORT INFORMATION
  Report Type: Spontaneous
  Country: FR (occurrence: FR)
  Receive Date: 20241129
  Receipt Date: 20241129
  Transmission Date: 20250115
  Serious: Yes (Other)
  Sender: JOHNSON AND JOHNSON
  Company Number: None

PATIENT
  Age: 62 Year
  Sex: Male
  Weight: 79 kg

DRUGS (3)
  1. DARZALEX [Suspect]
     Active Substance: DARATUMUMAB
     Indication: Plasmacytoma
     Dosage: 4 CYCLES
     Route: 058
     Dates: start: 20240322, end: 20240715
  2. BORTEZOMIB [Suspect]
     Active Substance: BORTEZOMIB
     Dosage: C4 J22
     Route: 058
     Dates: start: 20240322, end: 20240802
  3. LENALIDOMIDE [Suspect]
     Active Substance: LENALIDOMIDE
     Indication: Plasmacytoma
     Dosage: 4 CYCLES
     Route: 048
     Dates: start: 20240322, end: 20240801

REACTIONS (1)
  - Heart failure with reduced ejection fraction [Not Recovered/Not Resolved]

NARRATIVE: CASE EVENT DATE: 20240902
